FAERS Safety Report 7876901-9 (Version None)
Quarter: 2011Q4

REPORT INFORMATION
  Report Type: 
  Country: None (occurrence: None)
  Receive Date: 20111031
  Receipt Date: 20111026
  Transmission Date: 20120403
  Serious: Yes (Disabling, Other)
  Sender: FDA-Public Use
  Company Number: US-CEPHALON-2011005548

PATIENT
  Sex: Female

DRUGS (1)
  1. PROVIGIL [Suspect]
     Route: 048

REACTIONS (1)
  - APHTHOUS STOMATITIS [None]
